FAERS Safety Report 7860402-8 (Version None)
Quarter: 2011Q4

REPORT INFORMATION
  Report Type: 
  Country: None (occurrence: None)
  Receive Date: 20111027
  Receipt Date: 20111017
  Transmission Date: 20120403
  Serious: Yes (Other)
  Sender: FDA-Public Use
  Company Number: PHFR2011GB05497

PATIENT
  Sex: Male

DRUGS (10)
  1. ASPIRIN [Concomitant]
     Indication: GENERAL PHYSICAL CONDITION
     Dosage: 75 MG, QD
     Route: 048
  2. DIAZEPAM [Concomitant]
     Dosage: 4 MG, QD
     Route: 048
  3. LEVOTHYROXINE SODIUM [Concomitant]
     Indication: GENERAL PHYSICAL CONDITION
     Dosage: 50 UG, QD
     Route: 048
  4. CITALOPRAM HYDROBROMIDE [Concomitant]
     Indication: GENERAL PHYSICAL CONDITION
     Dosage: 20 MG, QD
     Route: 048
  5. ALBUTEROL SULFATE AUTOHALER [Concomitant]
     Dosage: 100 DF, PRN
  6. CLOZARIL [Suspect]
     Indication: ACUTE PSYCHOSIS
     Dosage: 175 MG, BID
     Route: 048
     Dates: start: 20110714, end: 20111007
  7. SOLIFENACIN SUCCINATE [Concomitant]
     Dosage: 5 MG, QD
     Route: 048
  8. SIMVASTATIN [Concomitant]
     Indication: GENERAL PHYSICAL CONDITION
     Dosage: 40 MG, QD
     Route: 048
  9. OMEPRAZOLE [Concomitant]
     Indication: GENERAL PHYSICAL CONDITION
     Dosage: 20 MG, QD
     Route: 048
  10. ACETAMINOPHEN [Concomitant]
     Indication: BACK PAIN
     Dosage: 1 G, PRN
     Route: 048

REACTIONS (6)
  - URINARY TRACT INFECTION [None]
  - WHITE BLOOD CELL COUNT INCREASED [None]
  - SCHIZOPHRENIA, PARANOID TYPE [None]
  - SINUS TACHYCARDIA [None]
  - DRUG INEFFECTIVE [None]
  - BLOOD ALCOHOL INCREASED [None]
